FAERS Safety Report 13746528 (Version 3)
Quarter: 2019Q3

REPORT INFORMATION
  Report Type: Spontaneous
  Country: US (occurrence: US)
  Receive Date: 20170712
  Receipt Date: 20190911
  Transmission Date: 20191004
  Serious: Yes (Other)
  Sender: FDA-Public Use
  Company Number: US-ELI_LILLY_AND_COMPANY-US201707001468

PATIENT
  Age: 67 Year
  Sex: Male

DRUGS (3)
  1. LEVITRA [Concomitant]
     Active Substance: VARDENAFIL HYDROCHLORIDE
     Indication: ERECTILE DYSFUNCTION
     Dosage: 3 DOSAGE FORM, UNKNOWN (USED ONE TIME)
     Dates: start: 20081001, end: 20081001
  2. VIAGRA [Suspect]
     Active Substance: SILDENAFIL CITRATE
     Indication: ERECTILE DYSFUNCTION
     Dosage: UNK, UNKNOWN
     Route: 065
  3. CIALIS [Suspect]
     Active Substance: TADALAFIL
     Indication: ERECTILE DYSFUNCTION
     Dosage: 20 MG, PRN
     Route: 065
     Dates: start: 20070501, end: 20120120

REACTIONS (6)
  - Malignant melanoma stage III [Unknown]
  - Hypertension [Unknown]
  - Deafness neurosensory [Unknown]
  - Arteriosclerosis coronary artery [Unknown]
  - Accommodation disorder [Unknown]
  - Atrial fibrillation [Unknown]

NARRATIVE: CASE EVENT DATE: 20160929
